FAERS Safety Report 8771984 (Version 2)
Quarter: 2012Q4

REPORT INFORMATION
  Report Type: 
  Country: US (occurrence: US)
  Receive Date: 20120906
  Receipt Date: 20120918
  Transmission Date: 20130627
  Serious: Yes (Hospitalization)
  Sender: FDA-Public Use
  Company Number: US-ACTELION-A-US2012-67883

PATIENT
  Age: 82 Year
  Sex: Male

DRUGS (2)
  1. TRACLEER [Suspect]
     Indication: PULMONARY ARTERIAL HYPERTENSION
     Dosage: UNK
     Route: 048
     Dates: start: 20101210
  2. COUMADIN [Concomitant]

REACTIONS (6)
  - Fluid retention [Unknown]
  - Weight increased [Unknown]
  - Dyspnoea [Unknown]
  - Dehydration [Unknown]
  - Swelling [Unknown]
  - Hepatic enzyme increased [Unknown]
